FAERS Safety Report 9671859 (Version 1)
Quarter: 2013Q4

REPORT INFORMATION
  Report Type: Spontaneous
  Country: US (occurrence: US)
  Receive Date: 20131106
  Receipt Date: 20131106
  Transmission Date: 20140711
  Serious: No
  Sender: FDA-Public Use
  Company Number: US-ENDO PHARMACEUTICALS INC.-CARI20130010

PATIENT
  Age: 49 Year
  Sex: Female

DRUGS (2)
  1. CARISOPRODOL TABLETS 350MG [Suspect]
     Indication: BACK PAIN
     Dosage: 350 MG
     Route: 048
     Dates: end: 201308
  2. CARISOPRODOL TABLETS 350MG [Suspect]
     Indication: MUSCLE SPASMS

REACTIONS (2)
  - Abdominal pain upper [Unknown]
  - Abdominal distension [Unknown]
